FAERS Safety Report 18840665 (Version 1)
Quarter: 2021Q1

REPORT INFORMATION
  Report Type: Report from Study
  Country: US (occurrence: US)
  Receive Date: 20210203
  Receipt Date: 20210203
  Transmission Date: 20210419
  Serious: Yes (Other)
  Sender: FDA-Public Use
  Company Number: US-BAYER-2021-041778

PATIENT
  Age: 68 Year
  Sex: Female
  Weight: 102.04 kg

DRUGS (6)
  1. ADEMPAS [Suspect]
     Active Substance: RIOCIGUAT
     Indication: PULMONARY ARTERIAL HYPERTENSION
     Dosage: UNK
     Route: 048
     Dates: start: 20201015
  2. ELIQUIS [Concomitant]
     Active Substance: APIXABAN
  3. XARELTO [Concomitant]
     Active Substance: RIVAROXABAN
  4. ADEMPAS [Suspect]
     Active Substance: RIOCIGUAT
     Indication: PULMONARY ARTERIAL HYPERTENSION
     Dosage: 2.5 MG, TID
     Route: 048
  5. ADEMPAS [Suspect]
     Active Substance: RIOCIGUAT
     Indication: PULMONARY ARTERIAL HYPERTENSION
     Dosage: 2 MG, TID
     Route: 048
  6. DILTIAZEM. [Concomitant]
     Active Substance: DILTIAZEM

REACTIONS (12)
  - Pain [Unknown]
  - Abdominal discomfort [Unknown]
  - Chest pain [Unknown]
  - Insomnia [Unknown]
  - Dyspepsia [Unknown]
  - Dyspepsia [Not Recovered/Not Resolved]
  - Mental impairment [Not Recovered/Not Resolved]
  - Intentional product use issue [None]
  - Thrombosis [Unknown]
  - Urinary incontinence [Unknown]
  - Contusion [Unknown]
  - Asthenia [Unknown]

NARRATIVE: CASE EVENT DATE: 2020
